FAERS Safety Report 4485798-9 (Version None)
Quarter: 2004Q4

REPORT INFORMATION
  Report Type: 
  Country: None (occurrence: None)
  Receive Date: 20041026
  Receipt Date: 20041020
  Transmission Date: 20050328
  Serious: Yes (Life-Threatening)
  Sender: FDA-Public Use
  Company Number: IT-ROCHE-383772

PATIENT
  Age: 61 Year
  Sex: Male

DRUGS (3)
  1. TICLOPIDINE HCL [Suspect]
     Route: 048
     Dates: start: 20040806, end: 20040928
  2. CARDIRENE [Suspect]
     Route: 048
     Dates: start: 20040806, end: 20040928
  3. TORVAST [Suspect]
     Route: 048
     Dates: start: 20040806, end: 20040928

REACTIONS (4)
  - AGRANULOCYTOSIS [None]
  - FEBRILE NEUTROPENIA [None]
  - HEPATIC ENZYME INCREASED [None]
  - MONOCYTE COUNT INCREASED [None]
